FAERS Safety Report 16473592 (Version 2)
Quarter: 2019Q2

REPORT INFORMATION
  Report Type: Spontaneous
  Country: DE (occurrence: DE)
  Receive Date: 20190625
  Receipt Date: 20190629
  Transmission Date: 20190711
  Serious: Yes (Life-Threatening, Hospitalization, Disabling, Other)
  Sender: FDA-Public Use
  Company Number: DE-DRREDDYS-GER/GER/19/0111178

PATIENT
  Age: 50 Year
  Sex: Male
  Weight: 74 kg

DRUGS (16)
  1. CIPROFLOXACIN. [Suspect]
     Active Substance: CIPROFLOXACIN
     Indication: DIVERTICULITIS
     Dosage: 1-0-1
     Route: 048
     Dates: start: 20140930
  2. MACROGOL [Concomitant]
     Active Substance: POLYETHYLENE GLYCOLS
     Indication: PRODUCT USED FOR UNKNOWN INDICATION
     Dates: start: 20141001
  3. MOXIFLOXACIN-ACTAVIS 400MG [Suspect]
     Active Substance: MOXIFLOXACIN HYDROCHLORIDE
     Indication: BRONCHITIS
     Dosage: 1-0-0
     Dates: start: 20150113
  4. SINUPRET EXTRACT [Concomitant]
     Indication: PRODUCT USED FOR UNKNOWN INDICATION
     Dosage: 3X1
  5. OMEPRAZOLE. [Concomitant]
     Active Substance: OMEPRAZOLE
     Indication: PRODUCT USED FOR UNKNOWN INDICATION
     Dosage: SEIT 30 JAHREN, GERING DOSIERT (FOR 30 YEARS, IN SMALL DOSES) (LOW DOSE 1-0-0)
  6. PROSPAN COUGH SYRUP [Concomitant]
     Indication: PRODUCT USED FOR UNKNOWN INDICATION
     Dates: start: 20141223
  7. MCP [Concomitant]
     Active Substance: METOCLOPRAMIDE HYDROCHLORIDE
     Indication: PRODUCT USED FOR UNKNOWN INDICATION
     Dates: start: 20141002
  8. PARACODIN [DIHYDROCODEINE BITARTRATE] [Concomitant]
     Active Substance: DIHYDROCODEINE BITARTRATE
     Indication: PRODUCT USED FOR UNKNOWN INDICATION
     Dates: start: 20150113
  9. BUSCOPAN [Concomitant]
     Active Substance: BUTYLSCOPOLAMINE BROMIDE
     Indication: PRODUCT USED FOR UNKNOWN INDICATION
     Dates: start: 20141002
  10. CAPVAL [Concomitant]
     Indication: PRODUCT USED FOR UNKNOWN INDICATION
     Dates: start: 20141229
  11. NOVAMINSULFON [Concomitant]
     Active Substance: METAMIZOLE
     Indication: PRODUCT USED FOR UNKNOWN INDICATION
     Dates: start: 20140930
  12. NOVOPULMON [Concomitant]
     Active Substance: BUDESONIDE
     Indication: PRODUCT USED FOR UNKNOWN INDICATION
     Route: 055
     Dates: start: 20150105
  13. AMOXIDURA PLUS 875/125 MG FILMTABLETTEN [Suspect]
     Active Substance: AMOXICILLIN\CLAVULANATE POTASSIUM
     Indication: BRONCHITIS
     Dosage: TOTAL 20 DF
     Dates: start: 20141229
  14. ACC AKUT [Concomitant]
     Active Substance: ACETYLCYSTEINE
     Indication: PRODUCT USED FOR UNKNOWN INDICATION
     Dates: start: 20141223
  15. METRONIDAZOL 400 [Concomitant]
     Indication: DIVERTICULITIS
     Dosage: 1-0-1
     Route: 048
     Dates: start: 20140930
  16. PERENTEROL [Concomitant]
     Active Substance: SACCHAROMYCES CEREVISIAE
     Indication: DIARRHOEA
     Dates: start: 201410

REACTIONS (25)
  - Impaired work ability [Unknown]
  - Weight decreased [Recovered/Resolved]
  - Jaundice [Recovered/Resolved]
  - Constipation [Recovered/Resolved]
  - Weight bearing difficulty [Not Recovered/Not Resolved]
  - Movement disorder [Unknown]
  - Impaired quality of life [Not Recovered/Not Resolved]
  - Chromaturia [Recovered/Resolved]
  - Disturbance in attention [Not Recovered/Not Resolved]
  - Nausea [Recovered/Resolved]
  - Hepatitis acute [Recovered/Resolved]
  - Ocular icterus [Recovered/Resolved]
  - Exercise tolerance decreased [Not Recovered/Not Resolved]
  - Parkinson^s disease [Unknown]
  - Decreased appetite [Recovered/Resolved]
  - Faeces discoloured [Recovered/Resolved]
  - Dizziness [Not Recovered/Not Resolved]
  - Eosinophilia [Not Recovered/Not Resolved]
  - Insomnia [Recovered/Resolved]
  - Parkinsonism [Not Recovered/Not Resolved]
  - Gait disturbance [Unknown]
  - Decreased immune responsiveness [Not Recovered/Not Resolved]
  - Asthenia [Not Recovered/Not Resolved]
  - Pruritus generalised [Recovered/Resolved]
  - Fatigue [Not Recovered/Not Resolved]

NARRATIVE: CASE EVENT DATE: 2015
